FAERS Safety Report 15842005 (Version 1)
Quarter: 2019Q1

REPORT INFORMATION
  Report Type: Spontaneous
  Country: US (occurrence: US)
  Receive Date: 20190118
  Receipt Date: 20190118
  Transmission Date: 20190417
  Serious: Yes (Other)
  Sender: FDA-Public Use
  Company Number: US-SAKK-2019SA012671AA

PATIENT
  Age: 62 Year
  Sex: Male

DRUGS (6)
  1. PRALUENT [Suspect]
     Active Substance: ALIROCUMAB
     Indication: PRODUCT USED FOR UNKNOWN INDICATION
     Dosage: UNK UNK, QOW
     Route: 058
  2. TAMSULOSIN [Concomitant]
     Active Substance: TAMSULOSIN
  3. AMLODIPINE BESYLATE. [Concomitant]
     Active Substance: AMLODIPINE BESYLATE
  4. FINASTERIDE. [Concomitant]
     Active Substance: FINASTERIDE
  5. REPATHA [Suspect]
     Active Substance: EVOLOCUMAB
     Indication: HYPERLIPIDAEMIA
     Dosage: 140 MG, QOW
     Route: 058
     Dates: start: 2018, end: 2018
  6. LISINOPRIL. [Concomitant]
     Active Substance: LISINOPRIL

REACTIONS (12)
  - Blister [Unknown]
  - Arthralgia [Unknown]
  - Joint stiffness [Unknown]
  - Lip swelling [Unknown]
  - Skin exfoliation [Unknown]
  - Headache [Unknown]
  - Urticaria [Not Recovered/Not Resolved]
  - Musculoskeletal stiffness [Unknown]
  - Stevens-Johnson syndrome [Unknown]
  - Influenza like illness [Unknown]
  - Rash generalised [Unknown]
  - Back pain [Unknown]

NARRATIVE: CASE EVENT DATE: 201809
